FAERS Safety Report 6849181-0 (Version None)
Quarter: 2010Q3

REPORT INFORMATION
  Report Type: 
  Country: None (occurrence: None)
  Receive Date: 20100716
  Receipt Date: 20100709
  Transmission Date: 20110219
  Serious: Yes (Hospitalization)
  Sender: FDA-Public Use
  Company Number: US-B.I. PHARMACEUTICALS,INC./RIDGEFIELD-2010-BP-07813BP

PATIENT
  Sex: Male

DRUGS (3)
  1. FLOMAX [Suspect]
     Indication: POLLAKIURIA
     Route: 048
  2. GELNIQUE [Suspect]
     Indication: POLLAKIURIA
     Route: 061
     Dates: start: 20100401, end: 20100611
  3. BLOOD PRESSURE MEDICATIONS [Concomitant]

REACTIONS (7)
  - BLOOD PRESSURE INCREASED [None]
  - COUGH [None]
  - DYSPNOEA [None]
  - FLUID RETENTION [None]
  - HEART RATE IRREGULAR [None]
  - OEDEMA PERIPHERAL [None]
  - PULMONARY OEDEMA [None]
